FAERS Safety Report 6300149-2 (Version None)
Quarter: 2009Q3

REPORT INFORMATION
  Report Type: 
  Country: None (occurrence: None)
  Receive Date: 20090806
  Receipt Date: 20090728
  Transmission Date: 20100115
  Serious: Yes (Disabling)
  Sender: FDA-Public Use
  Company Number: PHHY2009AU15438

PATIENT
  Sex: Female

DRUGS (8)
  1. GLEEVEC [Suspect]
     Indication: CHRONIC MYELOID LEUKAEMIA
     Dosage: 400 MG DAILY
     Route: 048
     Dates: start: 20090201
  2. GLUCOVANCE [Concomitant]
  3. OSTEO-BLAST [Concomitant]
  4. NORVASC [Concomitant]
  5. ZOCOR [Concomitant]
  6. PRILOSEC [Concomitant]
  7. XANAX [Concomitant]
  8. NUROFEN [Concomitant]

REACTIONS (5)
  - EMOTIONAL DISTRESS [None]
  - MUSCLE SPASMS [None]
  - PAIN [None]
  - SPLINT APPLICATION [None]
  - TENDON RUPTURE [None]
